FAERS Safety Report 15042762 (Version 2)
Quarter: 2018Q2

REPORT INFORMATION
  Report Type: Spontaneous
  Country: GB (occurrence: GB)
  Receive Date: 20180621
  Receipt Date: 20180622
  Transmission Date: 20180711
  Serious: Yes (Other)
  Sender: FDA-Public Use
  Company Number: GB-TEVA-2018-GB-909328

PATIENT
  Age: 35 Year
  Sex: Male

DRUGS (12)
  1. MIDAZOLAM [Suspect]
     Active Substance: MIDAZOLAM HYDROCHLORIDE
     Indication: PERIOPERATIVE ANALGESIA
     Dosage: 2MG WAS ADMINISTERED IN DIVIDED DOSES
     Route: 065
  2. CEFUROXIME. [Concomitant]
     Active Substance: CEFUROXIME
     Route: 065
  3. DEXAMETHASONE. [Concomitant]
     Active Substance: DEXAMETHASONE
     Route: 065
  4. MORPHINE [Concomitant]
     Active Substance: MORPHINE
     Route: 048
  5. FENTANYL. [Suspect]
     Active Substance: FENTANYL
     Indication: PERIOPERATIVE ANALGESIA
     Dosage: 40MICROGRAM WAS ADMINISTERED IN DIVIDED DOSES
     Route: 065
  6. PROPOFOL. [Suspect]
     Active Substance: PROPOFOL
     Route: 041
  7. PROPOFOL. [Suspect]
     Active Substance: PROPOFOL
     Indication: SEDATION
     Route: 041
  8. LABETALOL [Concomitant]
     Active Substance: LABETALOL\LABETALOL HYDROCHLORIDE
     Indication: BLOOD PRESSURE MEASUREMENT
     Route: 065
  9. LIDOCAINE. [Concomitant]
     Active Substance: LIDOCAINE
     Dosage: INCISION WAS INFILTRATED WITH LIDOCAINE 2% WITH A 1:100,000 CONCENTRATION OF EPINEPHRINE
     Route: 065
  10. EPINEPHRINE. [Concomitant]
     Active Substance: EPINEPHRINE
     Dosage: INCISION WAS INFILTRATED WITH LIDOCAINE 2% WITH A 1:100,000 CONCENTRATION OF EPINEPHRINE
     Route: 065
  11. REMIFENTANIL [Suspect]
     Active Substance: REMIFENTANIL
     Indication: SEDATION
     Route: 041
  12. HYDROXYCHLOROQUINE [Concomitant]
     Active Substance: HYDROXYCHLOROQUINE
     Indication: PALINDROMIC RHEUMATISM
     Route: 065

REACTIONS (3)
  - Oxygen saturation decreased [Recovered/Resolved]
  - Obstructive airways disorder [Recovering/Resolving]
  - Hypoventilation [Unknown]
